FAERS Safety Report 13909909 (Version 1)
Quarter: 2017Q3

REPORT INFORMATION
  Report Type: Spontaneous
  Country: CH (occurrence: CH)
  Receive Date: 20170828
  Receipt Date: 20170828
  Transmission Date: 20171127
  Serious: Yes (Hospitalization)
  Sender: FDA-Public Use
  Company Number: CH-TEVA-798434ISR

PATIENT
  Age: 21 Year
  Sex: Female

DRUGS (8)
  1. IRFEN [Suspect]
     Active Substance: IBUPROFEN
     Route: 048
     Dates: start: 20170122, end: 20170122
  2. VENLAFAXINE [Suspect]
     Active Substance: VENLAFAXINE HYDROCHLORIDE
     Route: 048
     Dates: start: 20170122, end: 20170123
  3. DULOXETINE. [Suspect]
     Active Substance: DULOXETINE
     Route: 048
     Dates: start: 20170122, end: 20170122
  4. TRAMAL [Suspect]
     Active Substance: TRAMADOL
     Route: 048
     Dates: start: 20170122, end: 20170122
  5. SIRDALUD [Suspect]
     Active Substance: TIZANIDINE
     Route: 048
     Dates: start: 20170122, end: 20170122
  6. DAFALGAN [Suspect]
     Active Substance: ACETAMINOPHEN
     Route: 048
     Dates: start: 20170122, end: 20170122
  7. REDORMIN (HUMULUS LUPULUS HOPS\VALERIANA OFFICINALIS ROOT) [Suspect]
     Active Substance: HERBALS\HOPS\VALERIAN
     Route: 048
     Dates: start: 20170122, end: 20170122
  8. RELPAX [Suspect]
     Active Substance: ELETRIPTAN HYDROBROMIDE
     Route: 048
     Dates: start: 20170122, end: 20170122

REACTIONS (8)
  - Intentional overdose [Recovered/Resolved]
  - Mydriasis [Recovered/Resolved]
  - Confusional state [Recovered/Resolved]
  - Serotonin syndrome [None]
  - Somnolence [Recovered/Resolved]
  - Chills [Recovered/Resolved]
  - Eyelid myoclonus [Recovered/Resolved]
  - Suicide attempt [None]

NARRATIVE: CASE EVENT DATE: 20170122
